FAERS Safety Report 5158689-8 (Version None)
Quarter: 2006Q4

REPORT INFORMATION
  Report Type: 
  Country: None (occurrence: None)
  Receive Date: 20061128
  Receipt Date: 20061117
  Transmission Date: 20070319
  Serious: Yes (Hospitalization)
  Sender: FDA-Public Use
  Company Number: JP-ELI_LILLY_AND_COMPANY-JP200611004458

PATIENT
  Sex: Female

DRUGS (3)
  1. GEMZAR [Suspect]
     Indication: PANCREATIC CARCINOMA
     Dosage: 1200 MG / BODY
     Route: 042
     Dates: start: 20060904
  2. BRIPLATIN [Concomitant]
     Indication: PANCREATIC CARCINOMA
     Dosage: 20 MG / BODY
     Route: 033
     Dates: start: 20061104
  3. PICIBANIL [Concomitant]
     Indication: PANCREATIC CARCINOMA
     Dosage: 10 KE, OTHER
     Route: 033
     Dates: start: 20061104

REACTIONS (3)
  - DYSPHONIA [None]
  - MALIGNANT PLEURAL EFFUSION [None]
  - TINNITUS [None]
